FAERS Safety Report 24418237 (Version 1)
Quarter: 2024Q4

REPORT INFORMATION
  Report Type: Spontaneous
  Country: US (occurrence: US)
  Receive Date: 20241009
  Receipt Date: 20241009
  Transmission Date: 20250114
  Serious: No
  Sender: SANOFI AVENTIS
  Company Number: US-SA-2024SA231759

PATIENT
  Sex: Female
  Weight: 75.7 kg

DRUGS (12)
  1. KEVZARA [Suspect]
     Active Substance: SARILUMAB
     Indication: Polymyalgia rheumatica
     Dosage: 200 MG, QOW
     Route: 058
     Dates: start: 20240727
  2. XARELTO [Concomitant]
     Active Substance: RIVAROXABAN
  3. MULTAQ [Concomitant]
     Active Substance: DRONEDARONE
  4. TYLENOL ARTHRITIS PAIN [Concomitant]
     Active Substance: ACETAMINOPHEN
  5. BIOTIN [Concomitant]
     Active Substance: BIOTIN
  6. PROLIA [Concomitant]
     Active Substance: DENOSUMAB
  7. PREDNISONE [Concomitant]
     Active Substance: PREDNISONE
  8. CELEBREX [Concomitant]
     Active Substance: CELECOXIB
  9. AG GABAPENTIN [Concomitant]
  10. HYDROCHLOROTHIAZIDE [Concomitant]
     Active Substance: HYDROCHLOROTHIAZIDE
  11. METOPROLOL SUCCINATE [Concomitant]
     Active Substance: METOPROLOL SUCCINATE
  12. OMEPRAZOLE [Concomitant]
     Active Substance: OMEPRAZOLE

REACTIONS (1)
  - Drug ineffective [Unknown]

NARRATIVE: CASE EVENT DATE: 20240101
